FAERS Safety Report 8005771-3 (Version None)
Quarter: 2011Q4

REPORT INFORMATION
  Report Type: 
  Country: None (occurrence: None)
  Receive Date: 20111223
  Receipt Date: 20111212
  Transmission Date: 20120403
  Serious: Yes (Hospitalization)
  Sender: FDA-Public Use
  Company Number: US-JNJFOC-20090307044

PATIENT
  Sex: Female
  Weight: 89.4 kg

DRUGS (16)
  1. DESVENLAFAXINE SUCCINATE MONOHYDRATE [Suspect]
     Route: 048
     Dates: start: 20080909, end: 20081122
  2. LEXAPRO [Suspect]
     Indication: ILL-DEFINED DISORDER
  3. FLUTICASONE FUROATE [Suspect]
     Indication: ILL-DEFINED DISORDER
     Route: 055
  4. LORATADINE [Suspect]
     Indication: ILL-DEFINED DISORDER
  5. VICODIN [Suspect]
     Indication: ILL-DEFINED DISORDER
     Dosage: 5/500 AS NEEDED
  6. AMBIEN [Suspect]
     Indication: ILL-DEFINED DISORDER
     Route: 048
  7. LYRICA [Suspect]
     Indication: ILL-DEFINED DISORDER
  8. PLACEBO [Suspect]
     Indication: MENOPAUSAL SYMPTOMS
     Route: 048
     Dates: start: 20080909, end: 20081122
  9. ABILIFY [Suspect]
     Indication: ILL-DEFINED DISORDER
  10. VIVELLE [Suspect]
     Indication: ILL-DEFINED DISORDER
     Route: 062
  11. ZESTORETIC [Suspect]
     Indication: ILL-DEFINED DISORDER
     Dosage: 20/12.5 DAILY
  12. DESVENLAFAXINE SUCCINATE MONOHYDRATE [Suspect]
     Indication: MENOPAUSAL SYMPTOMS
     Route: 048
     Dates: start: 20081129, end: 20081224
  13. ROBAXIN [Suspect]
     Indication: ILL-DEFINED DISORDER
  14. IBUPROFEN [Suspect]
     Indication: ILL-DEFINED DISORDER
  15. PLACEBO [Suspect]
     Route: 048
     Dates: start: 20081129, end: 20081224
  16. CLONAZEPAM [Suspect]
     Indication: ILL-DEFINED DISORDER

REACTIONS (7)
  - MENTAL STATUS CHANGES [None]
  - HYPOKALAEMIA [None]
  - DYSARTHRIA [None]
  - HYPERTENSION [None]
  - POLYMEDICATION [None]
  - ASTHENIA [None]
  - HEADACHE [None]
